FAERS Safety Report 13184113 (Version 1)
Quarter: 2017Q1

REPORT INFORMATION
  Report Type: Spontaneous
  Country: None (occurrence: DE)
  Receive Date: 20170203
  Receipt Date: 20170203
  Transmission Date: 20170428
  Serious: Yes (Other)
  Sender: FDA-Public Use
  Company Number: DE-MEDAC PHARMA, INC.-1062698

PATIENT
  Age: 62 Year
  Sex: Female
  Weight: 69 kg

DRUGS (1)
  1. METEX FERTIGPEN [Suspect]
     Active Substance: METHOTREXATE SODIUM
     Indication: RHEUMATIC DISORDER
     Dates: start: 201404

REACTIONS (2)
  - Procedural haemorrhage [Recovered/Resolved]
  - Premature recovery from anaesthesia [Unknown]

NARRATIVE: CASE EVENT DATE: 20161010
